FAERS Safety Report 6089684-2 (Version None)
Quarter: 2009Q1

REPORT INFORMATION
  Report Type: 
  Country: None (occurrence: None)
  Receive Date: 20090224
  Receipt Date: 20090216
  Transmission Date: 20090719
  Serious: Yes (Hospitalization, Other)
  Sender: FDA-Public Use
  Company Number: IN-ROXANE LABORATORIES, INC.-2009-RO-00148RO

PATIENT
  Age: 25 Year
  Sex: Female

DRUGS (5)
  1. LITHIUM CARBONATE [Suspect]
     Indication: BIPOLAR DISORDER
     Dosage: 800MG
  2. CARBAMAZEPINE [Suspect]
     Indication: BIPOLAR DISORDER
     Dosage: 400MG
  3. PHENYTOIN [Suspect]
     Indication: CONVULSION
  4. ANTIBIOTICS [Suspect]
  5. CALCIUM GLUCONATE [Concomitant]
     Indication: BLOOD CALCIUM DECREASED

REACTIONS (5)
  - BLOOD CALCIUM DECREASED [None]
  - DEHYDRATION [None]
  - GRAND MAL CONVULSION [None]
  - LEUKOCYTOSIS [None]
  - THERAPEUTIC AGENT TOXICITY [None]
